FAERS Safety Report 22008542 (Version 1)
Quarter: 2023Q1

REPORT INFORMATION
  Report Type: Report from Study
  Country: US (occurrence: US)
  Receive Date: 20230219
  Receipt Date: 20230219
  Transmission Date: 20230417
  Serious: Yes (Hospitalization)
  Sender: FDA-Public Use
  Company Number: None

PATIENT
  Age: 13 Year
  Sex: Female

DRUGS (4)
  1. CARGLUMIC ACID [Suspect]
     Active Substance: CARGLUMIC ACID
     Indication: Hyperglycinaemia
     Route: 048
     Dates: start: 20220722
  2. CARGLUMIC ACID [Suspect]
     Active Substance: CARGLUMIC ACID
     Route: 048
     Dates: start: 20220722
  3. CARGLUMIC ACID [Suspect]
     Active Substance: CARGLUMIC ACID
     Route: 048
     Dates: start: 20220722
  4. CARGLUMIC ACID [Suspect]
     Active Substance: CARGLUMIC ACID
     Route: 048
     Dates: start: 20220722

REACTIONS (2)
  - Treatment noncompliance [Unknown]
  - Hyperammonaemia [Unknown]
